FAERS Safety Report 11908427 (Version 2)
Quarter: 2016Q1

REPORT INFORMATION
  Report Type: Spontaneous
  Country: BR (occurrence: BR)
  Receive Date: 20160111
  Receipt Date: 20160120
  Transmission Date: 20160526
  Serious: Yes (Hospitalization, Other)
  Sender: FDA-Public Use
  Company Number: BR-PFIZER INC-2016006302

PATIENT
  Age: 73 Year
  Sex: Female

DRUGS (9)
  1. AAS [Concomitant]
     Active Substance: ASPIRIN
     Dosage: ONE TABLET (100 MG), DAILY AFTER LUNCH
  2. SIMVASTATIN. [Concomitant]
     Active Substance: SIMVASTATIN
     Dosage: ONE TABLET (20 MG), DAILY
     Dates: start: 20151222
  3. CARVEDILOL. [Concomitant]
     Active Substance: CARVEDILOL
     Dosage: ONE TABLET (12.5 MG), 2X/DAY
     Dates: start: 20151222
  4. DALACIN C [Suspect]
     Active Substance: CLINDAMYCIN PHOSPHATE
     Indication: INFECTION
  5. CIPROFLOXACIN HCL [Suspect]
     Active Substance: CIPROFLOXACIN HYDROCHLORIDE
     Indication: INFLAMMATION
     Dosage: ONE TABLET (500 MG), DAILY
     Dates: start: 20151229
  6. DALACIN C [Suspect]
     Active Substance: CLINDAMYCIN PHOSPHATE
     Indication: INFLAMMATION
     Dosage: ONE TABLET (300MG), 2X/DAY (EVERY 12 HOURS)
     Route: 048
     Dates: start: 20151229
  7. HYDROCHLOROTHIAZIDE. [Concomitant]
     Active Substance: HYDROCHLOROTHIAZIDE
     Dosage: 1 TABLET (UNSPECIFIED DOSE), DAILY
     Dates: start: 20151222
  8. OMEPRAZOLE. [Concomitant]
     Active Substance: OMEPRAZOLE
     Dosage: ONE TABLET (20 MG), DAILY, WHEN FASTING
     Dates: start: 20151222
  9. LISADOR [Concomitant]
     Active Substance: DIPYRONE\PROMETHAZINE HYDROCHLORIDE
     Dosage: 40 GTT, AS NEEDED (IN CASE OF PAIN)
     Dates: start: 20151222

REACTIONS (4)
  - Off label use [Unknown]
  - Vomiting [Recovered/Resolved]
  - Syncope [Recovered/Resolved]
  - Feeling abnormal [Recovered/Resolved]

NARRATIVE: CASE EVENT DATE: 20151231
